FAERS Safety Report 7544111-0 (Version None)
Quarter: 2011Q2

REPORT INFORMATION
  Report Type: 
  Country: None (occurrence: None)
  Receive Date: 20110613
  Receipt Date: 20051026
  Transmission Date: 20111010
  Serious: Yes (Hospitalization)
  Sender: FDA-Public Use
  Company Number: PHMT2005CA00463

PATIENT
  Sex: Female

DRUGS (8)
  1. GLYBURIDE [Concomitant]
     Dosage: UNK
  2. RISPERIDONE [Concomitant]
     Dosage: UNK
  3. SYNTHROID [Concomitant]
     Dosage: UNK
  4. METFORMIN HCL [Concomitant]
     Dosage: UNK
  5. ZOMETA [Suspect]
     Indication: BREAST CANCER
     Dosage: 3 MG, QW4
     Dates: start: 20050905
  6. LITHIUM [Concomitant]
     Dosage: UNK
  7. OXYBUTYNIN [Concomitant]
     Dosage: UNK
  8. ATORVASTATIN CALCIUM [Concomitant]
     Dosage: UNK

REACTIONS (3)
  - SOFT TISSUE INJURY [None]
  - BLOOD CREATINE PHOSPHOKINASE INCREASED [None]
  - URINARY TRACT INFECTION [None]
